FAERS Safety Report 7994683-7 (Version None)
Quarter: 2011Q4

REPORT INFORMATION
  Report Type: 
  Country: None (occurrence: None)
  Receive Date: 20111220
  Receipt Date: 20111216
  Transmission Date: 20120403
  Serious: Yes (Death)
  Sender: FDA-Public Use
  Company Number: FR-PFIZER INC-2011306517

PATIENT
  Age: 78 Year
  Sex: Female
  Weight: 58 kg

DRUGS (4)
  1. PREVISCAN [Concomitant]
     Dosage: UNK
     Dates: start: 20060112
  2. EPLERENONE [Suspect]
     Indication: MYOCARDIAL INFARCTION
     Dosage: 25 MG, 1X/DAY
     Dates: start: 20060711
  3. INSULIN [Concomitant]
  4. LEVOTHYROXINE SODIUM [Concomitant]
     Dosage: UNK
     Dates: start: 20060213

REACTIONS (1)
  - SUDDEN DEATH [None]
